FAERS Safety Report 5463392-0 (Version None)
Quarter: 2007Q3

REPORT INFORMATION
  Report Type: 
  Country: None (occurrence: None)
  Receive Date: 20070920
  Receipt Date: 20070827
  Transmission Date: 20080115
  Serious: Yes (Life-Threatening, Hospitalization)
  Sender: FDA-Public Use
  Company Number: JP-ASTRAZENECA-2007AP05810

PATIENT
  Age: 17941 Day
  Sex: Male

DRUGS (14)
  1. FOSCAVIR [Suspect]
     Indication: INFECTION PROPHYLAXIS
     Route: 042
     Dates: start: 20061123, end: 20061208
  2. FOSCAVIR [Suspect]
     Route: 042
     Dates: start: 20061209, end: 20061230
  3. FOSCAVIR [Suspect]
     Route: 042
     Dates: start: 20070120, end: 20070201
  4. COMBIVIR [Suspect]
     Indication: HIV INFECTION
     Dosage: 2 TABLETS DAILY
     Route: 048
     Dates: start: 20061114, end: 20061211
  5. KALETRA [Suspect]
     Indication: HIV INFECTION
     Dosage: 4 TABLETS PER DAY
     Route: 048
     Dates: start: 20061114, end: 20070223
  6. REYATAZ [Suspect]
     Route: 048
     Dates: start: 20070224, end: 20070319
  7. EPZICOM [Suspect]
     Indication: HIV INFECTION
     Dosage: 1 TABLET/DAY
     Route: 048
     Dates: start: 20061212, end: 20070319
  8. ZITHROMAC [Suspect]
     Indication: INFECTION PROPHYLAXIS
     Route: 048
     Dates: start: 20060611
  9. VALGANCICLOVIR HCL [Concomitant]
     Route: 048
     Dates: start: 20061123
  10. BAKTAR [Concomitant]
     Indication: ANTIFUNGAL PROPHYLAXIS
     Route: 048
     Dates: start: 20061106, end: 20061122
  11. DIFLUCAN [Concomitant]
     Route: 048
     Dates: start: 20061108, end: 20070127
  12. GASTER OD [Concomitant]
     Route: 048
     Dates: start: 20061116, end: 20070306
  13. FUNGIZONE [Concomitant]
     Route: 048
     Dates: start: 20061103, end: 20070220
  14. I V SOLUTIONS [Concomitant]
     Route: 042
     Dates: start: 20061025, end: 20070220

REACTIONS (13)
  - ACUTE RESPIRATORY FAILURE [None]
  - CEREBRAL TOXOPLASMOSIS [None]
  - DISSEMINATED INTRAVASCULAR COAGULATION [None]
  - EATING DISORDER [None]
  - ENCEPHALITIS [None]
  - LOSS OF CONSCIOUSNESS [None]
  - PANCYTOPENIA [None]
  - PLEURAL ADHESION [None]
  - PNEUMOTHORAX [None]
  - RESPIRATORY ARREST [None]
  - SEPSIS [None]
  - SHOCK [None]
  - STAPHYLOCOCCAL INFECTION [None]
